FAERS Safety Report 16344899 (Version 7)
Quarter: 2020Q2

REPORT INFORMATION
  Report Type: Report from Study
  Country: None (occurrence: US)
  Receive Date: 20190522
  Receipt Date: 20200601
  Transmission Date: 20200713
  Serious: Yes (Other)
  Sender: FDA-Public Use
  Company Number: US-ABBVIE-19K-163-2790538-00

PATIENT
  Age: 54 Year
  Sex: Male

DRUGS (4)
  1. HUMIRA [Suspect]
     Active Substance: ADALIMUMAB
     Indication: ANKYLOSING SPONDYLITIS
     Route: 058
     Dates: start: 20190516, end: 2020
  2. HUMIRA [Suspect]
     Active Substance: ADALIMUMAB
     Route: 058
     Dates: start: 2020
  3. AZULFIDINE [Concomitant]
     Active Substance: SULFASALAZINE
     Indication: PRODUCT USED FOR UNKNOWN INDICATION
     Dosage: 3 PILLS
     Route: 048
  4. AZULFIDINE [Concomitant]
     Active Substance: SULFASALAZINE
     Dosage: 2 PILLS DOSE DECREASE.
     Route: 048

REACTIONS (21)
  - Loss of personal independence in daily activities [Recovering/Resolving]
  - Back pain [Recovering/Resolving]
  - Pain [Unknown]
  - Arthralgia [Not Recovered/Not Resolved]
  - Musculoskeletal stiffness [Not Recovered/Not Resolved]
  - Pain in extremity [Unknown]
  - Neck pain [Recovering/Resolving]
  - Mobility decreased [Recovering/Resolving]
  - Joint range of motion decreased [Not Recovered/Not Resolved]
  - Nasopharyngitis [Unknown]
  - Ankylosing spondylitis [Not Recovered/Not Resolved]
  - General physical condition abnormal [Recovering/Resolving]
  - Musculoskeletal stiffness [Recovered/Resolved]
  - Musculoskeletal stiffness [Recovering/Resolving]
  - Cough [Unknown]
  - Pruritus [Unknown]
  - Hypoacusis [Unknown]
  - Fatigue [Not Recovered/Not Resolved]
  - Tinnitus [Unknown]
  - Arthralgia [Recovering/Resolving]
  - Discomfort [Unknown]

NARRATIVE: CASE EVENT DATE: 2019
